FAERS Safety Report 13285758 (Version 1)
Quarter: 2017Q1

REPORT INFORMATION
  Report Type: Spontaneous
  Country: SI (occurrence: SI)
  Receive Date: 20170301
  Receipt Date: 20170301
  Transmission Date: 20170428
  Serious: Yes (Other)
  Sender: FDA-Public Use
  Company Number: SI-REGENERON PHARMACEUTICALS, INC.-2017-12572

PATIENT

DRUGS (3)
  1. EYLEA [Suspect]
     Active Substance: AFLIBERCEPT
     Dosage: ONCE 3RD INJECTION; RIGHT EYE
     Dates: start: 20151116, end: 20151116
  2. EYLEA [Suspect]
     Active Substance: AFLIBERCEPT
     Dosage: ONCE 2ND INJECTION; RIGHT EYE
     Dates: start: 20151013, end: 20151013
  3. EYLEA [Suspect]
     Active Substance: AFLIBERCEPT
     Indication: DIABETIC RETINAL OEDEMA
     Dosage: ONCE 1ST INJECTION; RIGHT EYE
     Dates: start: 20150914, end: 20150914

REACTIONS (2)
  - Cataract operation [Unknown]
  - Visual acuity reduced [Unknown]

NARRATIVE: CASE EVENT DATE: 20151013
